FAERS Safety Report 23607890 (Version 1)
Quarter: 2024Q1

REPORT INFORMATION
  Report Type: Spontaneous
  Country: BR (occurrence: BR)
  Receive Date: 20240307
  Receipt Date: 20240307
  Transmission Date: 20240409
  Serious: Yes (Other)
  Sender: FDA-Public Use
  Company Number: BR-WOODWARD-2024-BR-000013

PATIENT
  Sex: Male

DRUGS (1)
  1. DUTASTERIDE\TAMSULOSIN HYDROCHLORIDE [Suspect]
     Active Substance: DUTASTERIDE\TAMSULOSIN HYDROCHLORIDE
     Indication: Product used for unknown indication
     Dosage: 0.5 MG, 30 CAPSULES CC, 0.4 MG
     Route: 065

REACTIONS (4)
  - Urinary retention [Unknown]
  - Malaise [Unknown]
  - Product dose omission issue [Unknown]
  - Product availability issue [Unknown]
